FAERS Safety Report 9634013 (Version 1)
Quarter: 2013Q4

REPORT INFORMATION
  Report Type: Spontaneous
  Country: US (occurrence: US)
  Receive Date: 20131021
  Receipt Date: 20131021
  Transmission Date: 20140711
  Serious: No
  Sender: FDA-Public Use
  Company Number: US-009507513-1310USA003854

PATIENT
  Sex: Female
  Weight: 168.6 kg

DRUGS (3)
  1. NEXPLANON [Suspect]
     Dosage: UNK
     Route: 059
     Dates: start: 20130828, end: 20130830
  2. NEXPLANON [Suspect]
     Dosage: UNK
     Route: 059
     Dates: start: 20130906, end: 20130906
  3. NEXPLANON [Suspect]
     Dosage: UNK
     Route: 059
     Dates: start: 20130906

REACTIONS (4)
  - Device expulsion [Recovered/Resolved]
  - Device difficult to use [Recovered/Resolved]
  - Product quality issue [Unknown]
  - No adverse event [Unknown]
